FAERS Safety Report 4338058-0 (Version None)
Quarter: 2004Q2

REPORT INFORMATION
  Report Type: 
  Country: None (occurrence: None)
  Receive Date: 20040407
  Receipt Date: 20040331
  Transmission Date: 20050107
  Serious: Yes (Death)
  Sender: FDA-Public Use
  Company Number: D01200401118

PATIENT
  Age: 69 Year
  Sex: Male
  Weight: 58 kg

DRUGS (1)
  1. CISPLATIN [Suspect]
     Indication: NEOPLASM MALIGNANT
     Dosage: 100 MG/M2
     Route: 042
     Dates: start: 20030825, end: 20030825

REACTIONS (6)
  - CACHEXIA [None]
  - HEPATIC FAILURE [None]
  - LARYNGEAL CANCER [None]
  - MALNUTRITION [None]
  - PNEUMONIA [None]
  - WEIGHT DECREASED [None]
